FAERS Safety Report 5812127-8 (Version None)
Quarter: 2008Q3

REPORT INFORMATION
  Report Type: 
  Country: None (occurrence: None)
  Receive Date: 20080716
  Receipt Date: 20080707
  Transmission Date: 20090109
  Serious: Yes (Hospitalization, Other)
  Sender: FDA-Public Use
  Company Number: AU-ABBOTT-08P-008-0447260-00

PATIENT
  Sex: Female

DRUGS (2)
  1. HUMIRA [Suspect]
     Indication: CROHN'S DISEASE
     Route: 058
     Dates: start: 20071001
  2. AZATHIOPRINE [Concomitant]
     Indication: IMMUNOSUPPRESSION

REACTIONS (2)
  - ADHESION [None]
  - SMALL INTESTINAL OBSTRUCTION [None]
